FAERS Safety Report 7197536-X (Version None)
Quarter: 2010Q4

REPORT INFORMATION
  Report Type: 
  Country: None (occurrence: None)
  Receive Date: 20101213
  Receipt Date: 20101126
  Transmission Date: 20110411
  Serious: Yes (Disabling)
  Sender: FDA-Public Use
  Company Number: AUR-APL-2010-02994

PATIENT
  Age: 40 Year
  Sex: Female
  Weight: 75 kg

DRUGS (2)
  1. ALENDRONATE SODIUM [Suspect]
     Indication: BONE DISORDER
     Dosage: 70MG-QWEEK-ORAL
     Route: 048
     Dates: start: 20091201, end: 20100801
  2. OMALIZUMAB [Suspect]
     Indication: ASTHMA
     Dosage: 375MG-SQ
     Route: 058
     Dates: start: 20100101

REACTIONS (2)
  - ASTHMA [None]
  - POLYARTHRITIS [None]
